FAERS Safety Report 16400122 (Version 1)
Quarter: 2019Q2

REPORT INFORMATION
  Report Type: Spontaneous
  Country: FR (occurrence: FR)
  Receive Date: 20190606
  Receipt Date: 20190606
  Transmission Date: 20190711
  Serious: Yes (Hospitalization)
  Sender: FDA-Public Use
  Company Number: FR-MYLANLABS-2019M1053122

PATIENT
  Age: 65 Year
  Sex: Female

DRUGS (3)
  1. PACLITAXEL. [Suspect]
     Active Substance: PACLITAXEL
     Indication: OVARIAN EPITHELIAL CANCER
     Dosage: 1 DOSAGE FORM, CYCLE
     Route: 041
     Dates: start: 20180126, end: 20180925
  2. AVASTIN [Suspect]
     Active Substance: BEVACIZUMAB
     Indication: OVARIAN EPITHELIAL CANCER
     Dosage: 1 DOSAGE FORM, CYCLE
     Route: 041
     Dates: start: 20180717, end: 20180925
  3. CARBOPLATIN. [Suspect]
     Active Substance: CARBOPLATIN
     Indication: OVARIAN EPITHELIAL CANCER
     Dosage: 1 DOSAGE FORM, CYCLE
     Route: 041
     Dates: start: 20180126, end: 20180925

REACTIONS (1)
  - Splenic artery thrombosis [Not Recovered/Not Resolved]

NARRATIVE: CASE EVENT DATE: 20181011
